FAERS Safety Report 4802889-0 (Version None)
Quarter: 2005Q4

REPORT INFORMATION
  Report Type: 
  Country: None (occurrence: None)
  Receive Date: 20051019
  Receipt Date: 20051013
  Transmission Date: 20060501
  Serious: Yes (Other)
  Sender: FDA-Public Use
  Company Number: ES-JNJFOC-20050503053

PATIENT
  Age: 59 Year
  Sex: Male
  Weight: 103 kg

DRUGS (7)
  1. REMICADE [Suspect]
     Route: 042
  2. REMICADE [Suspect]
     Indication: ANKYLOSING SPONDYLITIS
     Route: 042
  3. NORVASC [Suspect]
     Indication: HYPERTENSION
     Dosage: 7 - 8 YEARS OF TREATMENT
  4. GLUCOSAMINE SULPHATE [Concomitant]
  5. GLUCOSAMINE SULPHATE [Concomitant]
  6. GLUCOSAMINE SULPHATE [Concomitant]
  7. GLUCOSAMINE SULPHATE [Concomitant]

REACTIONS (4)
  - DRUG INTERACTION [None]
  - ERECTILE DYSFUNCTION [None]
  - NASOPHARYNGITIS [None]
  - PENILE BLISTER [None]
